FAERS Safety Report 7038317-7 (Version None)
Quarter: 2010Q4

REPORT INFORMATION
  Report Type: 
  Country: None (occurrence: None)
  Receive Date: 20101011
  Receipt Date: 20091120
  Transmission Date: 20110411
  Serious: No
  Sender: FDA-Public Use
  Company Number: US-PFIZER INC-2009269764

PATIENT
  Sex: Female
  Weight: 47.2 kg

DRUGS (3)
  1. NEURONTIN [Suspect]
     Indication: RESTLESS LEGS SYNDROME
     Dosage: 200 MG, 3X/DAY
  2. SEROQUEL [Suspect]
     Dosage: UNK
     Dates: start: 20080101, end: 20090804
  3. XANAX [Concomitant]
     Indication: ANXIETY
     Dosage: 2 MG, 2X/DAY

REACTIONS (2)
  - BLADDER DISORDER [None]
  - GASTROINTESTINAL DISORDER [None]
